FAERS Safety Report 7830930 (Version 3)
Quarter: 2015Q2

REPORT INFORMATION
  Report Type: Report from Study
  Country: US (occurrence: US)
  Receive Date: 20110228
  Receipt Date: 20150629
  Transmission Date: 20150821
  Serious: Yes (Hospitalization)
  Sender: FDA-Public Use
  Company Number: US-BIOGENIDEC-2011BI005687

PATIENT
  Age: 58 Year
  Sex: Female

DRUGS (2)
  1. AVONEX [Suspect]
     Active Substance: INTERFERON BETA-1A
     Indication: MULTIPLE SCLEROSIS
     Route: 030
     Dates: start: 19990301, end: 20101130
  2. AVONEX [Suspect]
     Active Substance: INTERFERON BETA-1A
     Indication: MULTIPLE SCLEROSIS
     Route: 030

REACTIONS (14)
  - Abasia [Not Recovered/Not Resolved]
  - Musculoskeletal disorder [Not Recovered/Not Resolved]
  - Weight loss poor [Not Recovered/Not Resolved]
  - Femur fracture [Not Recovered/Not Resolved]
  - Balance disorder [Recovered/Resolved]
  - Knee arthroplasty [Recovered/Resolved]
  - Staphylococcal infection [Recovered/Resolved]
  - Speech disorder [Recovered/Resolved]
  - Headache [Not Recovered/Not Resolved]
  - Arthropathy [Recovered/Resolved]
  - Arthritis infective [Recovered/Resolved]
  - Lymphoedema [Not Recovered/Not Resolved]
  - Fatigue [Not Recovered/Not Resolved]
  - Fall [Recovered/Resolved]

NARRATIVE: CASE EVENT DATE: 200501
